FAERS Safety Report 7679391-4 (Version None)
Quarter: 2011Q3

REPORT INFORMATION
  Report Type: 
  Country: None (occurrence: None)
  Receive Date: 20110805
  Receipt Date: 20110726
  Transmission Date: 20111222
  Serious: Yes (Hospitalization, Other)
  Sender: FDA-Public Use
  Company Number: 2011SP019235

PATIENT
  Age: 29 Year
  Sex: Female
  Weight: 99.7913 kg

DRUGS (4)
  1. COUMADIN [Suspect]
     Indication: PULMONARY EMBOLISM
     Dates: start: 20080101, end: 20090101
  2. COUMADIN [Suspect]
     Indication: DEEP VEIN THROMBOSIS
     Dates: start: 20080101, end: 20090101
  3. NUVARING [Suspect]
     Indication: CONTRACEPTION
     Dates: start: 20080201, end: 20080408
  4. MAXZIDE [Suspect]
     Indication: OEDEMA PERIPHERAL

REACTIONS (17)
  - FALL [None]
  - SKIN CYST EXCISION [None]
  - PLEURAL EFFUSION [None]
  - OVARIAN CYST [None]
  - PERICARDITIS [None]
  - VITAMIN D DEFICIENCY [None]
  - DEEP VEIN THROMBOSIS [None]
  - PULMONARY EMBOLISM [None]
  - LEIOMYOMA [None]
  - TRICUSPID VALVE INCOMPETENCE [None]
  - PAIN IN EXTREMITY [None]
  - RHINITIS ALLERGIC [None]
  - LIGAMENT SPRAIN [None]
  - ABORTION MISSED [None]
  - MATERNAL EXPOSURE DURING PREGNANCY [None]
  - PERICARDIAL EFFUSION [None]
  - ATELECTASIS [None]
